FAERS Safety Report 5165735-4 (Version None)
Quarter: 2006Q4

REPORT INFORMATION
  Report Type: 
  Country: None (occurrence: None)
  Receive Date: 20061128
  Receipt Date: 20061113
  Transmission Date: 20070319
  Serious: Yes (Death, Hospitalization)
  Sender: FDA-Public Use
  Company Number: 2006BH014579

PATIENT
  Age: 48 Year
  Sex: Female
  Weight: 66.1 kg

DRUGS (2)
  1. DIANEAL [Suspect]
     Indication: RENAL FAILURE CHRONIC
     Dosage: 1500 ML; 3X A DAY; IP
     Route: 033
     Dates: start: 20020201, end: 20041101
  2. EXTRANEAL [Suspect]
     Indication: RENAL FAILURE CHRONIC
     Dosage: 1500 ML; EVERY DAY; IP
     Route: 033
     Dates: start: 20030901, end: 20041101

REACTIONS (8)
  - DIABETES MELLITUS INSULIN-DEPENDENT [None]
  - EXTRAPYRAMIDAL DISORDER [None]
  - ILEUS PARALYTIC [None]
  - INTESTINAL MASS [None]
  - PERITONEAL DIALYSIS [None]
  - PERITONEAL DISORDER [None]
  - PERITONITIS BACTERIAL [None]
  - POSTOPERATIVE ADHESION [None]
